FAERS Safety Report 12707831 (Version 1)
Quarter: 2016Q3

REPORT INFORMATION
  Report Type: Report from Study
  Country: BR (occurrence: BR)
  Receive Date: 20160901
  Receipt Date: 20160901
  Transmission Date: 20161109
  Serious: Yes (Death, Hospitalization)
  Sender: FDA-Public Use
  Company Number: PHHY2016BR092311

PATIENT
  Sex: Male
  Weight: 60 kg

DRUGS (1)
  1. EXJADE [Suspect]
     Active Substance: DEFERASIROX
     Indication: MYELODYSPLASTIC SYNDROME
     Dosage: 2 DF (15 MG/KG), QD
     Route: 048

REACTIONS (4)
  - Weight decreased [Unknown]
  - Haemoglobin decreased [Unknown]
  - Death [Fatal]
  - Platelet count decreased [Unknown]
